FAERS Safety Report 22288599 (Version 1)
Quarter: 2023Q2

REPORT INFORMATION
  Report Type: Spontaneous
  Country: FR (occurrence: FR)
  Receive Date: 20230505
  Receipt Date: 20230505
  Transmission Date: 20230721
  Serious: Yes (Hospitalization)
  Sender: FDA-Public Use
  Company Number: FR-ETHYPHARM-2021001395

PATIENT
  Age: 38 Year
  Sex: Male
  Weight: 72 kg

DRUGS (7)
  1. ACETAMINOPHEN [Suspect]
     Active Substance: ACETAMINOPHEN
     Indication: Poisoning deliberate
     Dosage: 8 G,QD (SINGLE INTAKE)
     Route: 065
     Dates: start: 20210830, end: 20210830
  2. CANNABIS SATIVA SUBSP. INDICA TOP [Suspect]
     Active Substance: CANNABIS SATIVA SUBSP. INDICA TOP
     Indication: Poisoning deliberate
     Dosage: UNK
     Route: 065
     Dates: start: 20210830, end: 20210830
  3. OXAZEPAM [Suspect]
     Active Substance: OXAZEPAM
     Indication: Poisoning deliberate
     Dosage: 20MG (STRENGTH: 10 MG)
     Route: 065
     Dates: start: 20210322, end: 20210831
  4. OXAZEPAM [Suspect]
     Active Substance: OXAZEPAM
     Indication: Mixed anxiety and depressive disorder
     Dosage: 150 MG, QD (SINGLE INTAKE OF 3 DFS , STRENGTH: 50 MG)
     Route: 065
     Dates: start: 20210830, end: 20210830
  5. OXAZEPAM [Suspect]
     Active Substance: OXAZEPAM
     Indication: Alcoholism
     Dosage: 150 MG, QD (SINGLE INTAKE OF 15 DFS, STRENGTH: 50 MG)
     Route: 065
     Dates: start: 20210830, end: 20210830
  6. PAROXETINE [Concomitant]
     Active Substance: PAROXETINE
     Indication: Mixed anxiety and depressive disorder
     Dosage: 25 MG
     Route: 065
     Dates: start: 20210609, end: 20210831
  7. ATARAX [Concomitant]
     Active Substance: HYDROXYZINE HYDROCHLORIDE
     Indication: Mixed anxiety and depressive disorder
     Dosage: 25 MG
     Route: 065
     Dates: start: 20210609, end: 20210831

REACTIONS (1)
  - Poisoning deliberate [Recovered/Resolved]

NARRATIVE: CASE EVENT DATE: 20210830
